FAERS Safety Report 8387779-1 (Version None)
Quarter: 2012Q2

REPORT INFORMATION
  Report Type: 
  Country: None (occurrence: None)
  Receive Date: 20120525
  Receipt Date: 20120521
  Transmission Date: 20120825
  Serious: Yes (Other)
  Sender: FDA-Public Use
  Company Number: ES-GLAXOSMITHKLINE-B0779492A

PATIENT
  Age: 65 Year
  Sex: Male

DRUGS (3)
  1. NABUMETONE [Concomitant]
     Indication: INFLAMMATION
  2. OMEPRAZOLE [Concomitant]
  3. AVODART [Suspect]
     Indication: BENIGN PROSTATIC HYPERPLASIA
     Dosage: 1CAP PER DAY
     Route: 048
     Dates: start: 20101114

REACTIONS (5)
  - BREAST CANCER [None]
  - BREAST INFLAMMATION [None]
  - BREAST PAIN [None]
  - GYNAECOMASTIA [None]
  - BREAST MASS [None]
